FAERS Safety Report 9518283 (Version 1)
Quarter: 2013Q3

REPORT INFORMATION
  Report Type: Spontaneous
  Country: DE (occurrence: None)
  Receive Date: 20130910
  Receipt Date: 20130910
  Transmission Date: 20140515
  Serious: Yes (Other)
  Sender: FDA-Public Use
  Company Number: GER/GER/13/0034461

PATIENT
  Age: 30 Year
  Sex: Female
  Weight: 95 kg

DRUGS (3)
  1. SERTRALINE (SERTRALINE) [Suspect]
     Indication: DEPRESSION
     Route: 048
  2. PAROXAT (PAROXETINE HYDROCHLORIDE) [Concomitant]
  3. BETAMETHASONE (BETAMETHASONE) [Concomitant]

REACTIONS (4)
  - Gestational diabetes [None]
  - Caesarean section [None]
  - Premature labour [None]
  - Exposure during pregnancy [None]
